FAERS Safety Report 11111358 (Version 4)
Quarter: 2015Q3

REPORT INFORMATION
  Report Type: Report from Study
  Country: NZ (occurrence: NZ)
  Receive Date: 20150513
  Receipt Date: 20150818
  Transmission Date: 20151125
  Serious: Yes (Other)
  Sender: FDA-Public Use
  Company Number: NZ-ABBVIE-15K-118-1388618-00

PATIENT
  Age: 36 Year
  Sex: Female
  Weight: 96 kg

DRUGS (2)
  1. HUMIRA [Suspect]
     Active Substance: ADALIMUMAB
     Route: 058
  2. HUMIRA [Suspect]
     Active Substance: ADALIMUMAB
     Indication: CROHN^S DISEASE
     Route: 058

REACTIONS (12)
  - Exposure during pregnancy [Unknown]
  - Endometritis [Unknown]
  - Post procedural infection [Unknown]
  - Drug ineffective [Unknown]
  - Bile acid malabsorption [Unknown]
  - Caesarean section [Unknown]
  - Crohn^s disease [Not Recovered/Not Resolved]
  - Abscess [Unknown]
  - Dermatitis allergic [Not Recovered/Not Resolved]
  - Anal fistula [Unknown]
  - Uveitis [Unknown]
  - Arthritis [Unknown]

NARRATIVE: CASE EVENT DATE: 201412
